FAERS Safety Report 17823084 (Version 1)
Quarter: 2020Q2

REPORT INFORMATION
  Report Type: Spontaneous
  Country: US (occurrence: US)
  Receive Date: 20200522
  Receipt Date: 20200522
  Transmission Date: 20200714
  Serious: Yes (Death, Hospitalization)
  Sender: FDA-Public Use
  Company Number: None

PATIENT
  Age: 64 Year
  Sex: Female

DRUGS (1)
  1. AMBRISENTAN 5MG TABLETS 30/BO: 5MG [Suspect]
     Active Substance: AMBRISENTAN
     Indication: PULMONARY HYPERTENSION
     Route: 048
     Dates: start: 20200324, end: 20200516

REACTIONS (5)
  - Chest pain [None]
  - Pulseless electrical activity [None]
  - Cardiac arrest [None]
  - Atrioventricular block complete [None]
  - Dyspnoea [None]

NARRATIVE: CASE EVENT DATE: 20200516
